FAERS Safety Report 15171463 (Version 1)
Quarter: 2018Q3

REPORT INFORMATION
  Report Type: Spontaneous
  Country: US (occurrence: US)
  Receive Date: 20180720
  Receipt Date: 20180720
  Transmission Date: 20181010
  Serious: Yes (Other)
  Sender: FDA-Public Use
  Company Number: US-PFIZER INC-2018289395

PATIENT
  Age: 44 Year
  Sex: Male

DRUGS (4)
  1. CYTARABINE. [Suspect]
     Active Substance: CYTARABINE
     Indication: ACUTE MYELOID LEUKAEMIA
     Dosage: UNK (7)
  2. IDARUBICIN HCL [Suspect]
     Active Substance: IDARUBICIN HYDROCHLORIDE
     Indication: ACUTE MYELOID LEUKAEMIA
     Dosage: UNK (3)
  3. IDARUBICIN HCL [Suspect]
     Active Substance: IDARUBICIN HYDROCHLORIDE
     Dosage: UNK (HIGH DOSE)
  4. CYTARABINE. [Suspect]
     Active Substance: CYTARABINE
     Dosage: UNK (HIGH DOSE)

REACTIONS (1)
  - Nephrogenic diabetes insipidus [Recovered/Resolved]
